FAERS Safety Report 7582937-8 (Version None)
Quarter: 2011Q2

REPORT INFORMATION
  Report Type: 
  Country: None (occurrence: None)
  Receive Date: 20110630
  Receipt Date: 20080827
  Transmission Date: 20111010
  Serious: Yes (Other)
  Sender: FDA-Public Use
  Company Number: US-BAYER-200839739NA

PATIENT
  Age: 33 Year
  Sex: Female
  Weight: 67 kg

DRUGS (21)
  1. ACETYLSALICYLIC ACID SRT [Concomitant]
     Dosage: 325 MG, UNK
     Route: 048
  2. NITROGLYCERIN [Concomitant]
     Dosage: UNK, TITRATED
     Route: 042
     Dates: start: 20020529
  3. PLASMALYTE [GLUCOSE,POTASSIUM CHLORIDE] [Concomitant]
     Dosage: 1000 ML, UNK
     Route: 042
     Dates: start: 20020529
  4. FRESH FROZEN PLASMA [Concomitant]
     Dosage: 2 U, UNK
     Route: 042
     Dates: start: 20020529, end: 20020529
  5. SODIUM BICARBONATE [Concomitant]
     Dosage: 10 MEQ, UNK
     Route: 042
     Dates: start: 20020529
  6. MANNITOL [Concomitant]
     Dosage: 12.5 G, UNK
     Route: 042
     Dates: start: 20020529
  7. OCUFLOX [Concomitant]
     Dosage: 0.3% EYE DROPS
     Dates: start: 20020424
  8. PLASMA [Concomitant]
     Dosage: 1 U, UNK
     Route: 042
     Dates: start: 20020529, end: 20020529
  9. CRYOPRECIPITATES [Concomitant]
     Dosage: 10 U, UNK
     Route: 042
     Dates: start: 20020529, end: 20020529
  10. VERSED [Concomitant]
     Dosage: UNK
     Route: 042
     Dates: start: 20020529
  11. PRIMACOR [Concomitant]
     Dosage: UNK
     Route: 042
     Dates: start: 20020529
  12. POTASSIUM CHLORIDE [Concomitant]
     Dosage: 30 MEQ, UNK
     Route: 042
     Dates: start: 20020529
  13. TRASYLOL [Suspect]
     Indication: AORTIC VALVE REPLACEMENT
     Dosage: 200 ML DOSE (LOADING DOSE)
     Route: 042
     Dates: start: 20020529, end: 20020529
  14. TRASYLOL [Suspect]
     Indication: AORTIC SURGERY
     Dosage: 50 ML/HR (INFUSION)
     Route: 042
     Dates: start: 20020529, end: 20020529
  15. ASCORBIC ACID [Concomitant]
     Dosage: 500 MG, QD
     Route: 048
  16. PROPOFOL [Concomitant]
     Dosage: UNK
     Route: 042
     Dates: start: 20020529
  17. PACKED RED BLOOD CELLS [Concomitant]
     Dosage: 1 U, UNK
     Route: 042
     Dates: start: 20020529, end: 20020529
  18. TRASYLOL [Suspect]
     Dosage: 200 ML (LOADING DOSE GIVEN IN ICU POST-OP)
     Route: 042
  19. PREDNISONE [Concomitant]
     Indication: PREMEDICATION
     Dosage: 20 MG, UNK
     Route: 048
     Dates: start: 20020502
  20. TRASYLOL [Suspect]
     Dosage: 50 ML/HR (INFUSION GIVEN IN ICU POST-OP)
     Route: 042
  21. PROTAMINE SULFATE [Concomitant]
     Dosage: 350 MG, UNK
     Route: 042
     Dates: start: 20020529

REACTIONS (7)
  - DRUG HYPERSENSITIVITY [None]
  - ANHEDONIA [None]
  - BLOOD DISORDER [None]
  - THROMBOTIC THROMBOCYTOPENIC PURPURA [None]
  - RENAL FAILURE [None]
  - HEPATIC FAILURE [None]
  - PAIN [None]
